FAERS Safety Report 7205031-4 (Version None)
Quarter: 2010Q4

REPORT INFORMATION
  Report Type: 
  Country: None (occurrence: None)
  Receive Date: 20101230
  Receipt Date: 20101216
  Transmission Date: 20110411
  Serious: Yes (Death, Other)
  Sender: FDA-Public Use
  Company Number: GR-CELGENEUS-066-20785-10122349

PATIENT

DRUGS (4)
  1. REVLIMID [Suspect]
     Indication: MULTIPLE MYELOMA
     Route: 048
  2. THALIDOMIDE [Suspect]
     Indication: MULTIPLE MYELOMA
     Route: 048
  3. BISPHOSPHONATES [Concomitant]
     Indication: MULTIPLE MYELOMA
     Route: 065
  4. EPOGEN [Concomitant]
     Indication: MULTIPLE MYELOMA
     Route: 065

REACTIONS (7)
  - DEATH [None]
  - DISEASE PROGRESSION [None]
  - EMBOLISM ARTERIAL [None]
  - FEBRILE INFECTION [None]
  - H1N1 INFLUENZA [None]
  - PALMAR-PLANTAR ERYTHRODYSAESTHESIA SYNDROME [None]
  - POLYNEUROPATHY [None]
